FAERS Safety Report 5105422-1 (Version None)
Quarter: 2006Q3

REPORT INFORMATION
  Report Type: 
  Country: None (occurrence: None)
  Receive Date: 20060915
  Receipt Date: 20060905
  Transmission Date: 20061208
  Serious: Yes (Other)
  Sender: FDA-Public Use
  Company Number: PHBS2006IT13490

PATIENT
  Age: 33 Year
  Sex: Female

DRUGS (1)
  1. DESFERAL [Suspect]
     Dosage: UNK, UNK
     Route: 058

REACTIONS (1)
  - NEUTROPENIA [None]
